FAERS Safety Report 9399915 (Version 2)
Quarter: 2013Q3

REPORT INFORMATION
  Report Type: Spontaneous
  Country: US (occurrence: None)
  Receive Date: 20130710
  Receipt Date: 20130808
  Transmission Date: 20140515
  Serious: Yes (Death)
  Sender: FDA-Public Use
  Company Number: ALK-2013-001745

PATIENT
  Age: 30 Year
  Sex: Male

DRUGS (1)
  1. VIVITROL (VIVITROL_NDA) INJECTION, 380MG [Suspect]
     Indication: PRODUCT USED FOR UNKNOWN INDICATION
     Route: 030
     Dates: start: 20130222, end: 20130222

REACTIONS (1)
  - Lung disorder [None]
